FAERS Safety Report 8441730-4 (Version None)
Quarter: 2012Q2

REPORT INFORMATION
  Report Type: 
  Country: None (occurrence: None)
  Receive Date: 20120323
  Receipt Date: 20110614
  Transmission Date: 20120825
  Serious: Yes (Other)
  Sender: FDA-Public Use
  Company Number: 163-21880-11062080

PATIENT
  Age: 80 Year
  Sex: Female

DRUGS (7)
  1. VELCADE [Concomitant]
  2. CITALOPRAM HYDROBROMIDE [Concomitant]
  3. FUROSEMIDE [Concomitant]
  4. PROCHLORPERAZINE (PROCHLORPERAZINE) (UNKNOWN) [Concomitant]
  5. LENALIDOMIDE [Suspect]
     Indication: MULTIPLE MYELOMA
     Dosage: 10 MG, DAILY X14D/21D, PO
     Route: 048
     Dates: start: 20100201
  6. LEVOTHROID (LEVOTHYROXINE SODIUM) (UNKNOWN) [Concomitant]
  7. DEXAMETHASONE [Concomitant]

REACTIONS (3)
  - MUSCLE SPASMS [None]
  - NEUROPATHY PERIPHERAL [None]
  - FATIGUE [None]
